FAERS Safety Report 18213034 (Version 1)
Quarter: 2020Q3

REPORT INFORMATION
  Report Type: Spontaneous
  Country: ES (occurrence: ES)
  Receive Date: 20200831
  Receipt Date: 20200831
  Transmission Date: 20201103
  Serious: Yes (Hospitalization)
  Sender: FDA-Public Use
  Company Number: ES-TEVA-2020-ES-1820180

PATIENT
  Age: 66 Year
  Sex: Female

DRUGS (18)
  1. OMEPRAZOL KERN PHARMA 20 MG CAPSULAS DURAS GASTRORRESISTENTES EFG , 28 [Concomitant]
     Dosage: 20MG
     Route: 048
     Dates: start: 20140130
  2. ALOPURINOL NORMON 100 MG COMPRIMIDOS EFG , 100 COMPRIMIDOS [Concomitant]
     Dosage: 100MG
     Route: 048
     Dates: start: 20191016
  3. ADIRO 100 MG COMPRIMIDOS GASTRORRESISTENTES EFG, 30 COMPRIMIDOS (PVC? [Concomitant]
     Dosage: 100MG
     Route: 048
     Dates: start: 20190701
  4. LINEZOLID (1279A) [Suspect]
     Active Substance: LINEZOLID
     Indication: POSTOPERATIVE WOUND INFECTION
     Dosage: 600MG
     Route: 048
     Dates: start: 202006, end: 20200716
  5. TARDYFERON 80 MG COMPRIMIDOS RECUBIERTOS, 30 COMPRIMIDOS [Concomitant]
     Dosage: 80MG
     Route: 048
     Dates: start: 20140814
  6. LANTUS SOLOSTAR 100 UNIDADES/ML SOLUCION INYECTABLE EN PLUMA PRECARGAD [Concomitant]
     Dosage: 46IU
     Route: 058
     Dates: start: 20200303
  7. HIDROCLOROTIAZIDA KERN PHARMA 50 MG COMPRIMIDOS EFG, 20 COMPRIMIDOS [Concomitant]
     Dosage: 50MG
     Route: 048
     Dates: start: 20160128
  8. FUROSEMIDA SANDOZ 40 MG COMPRIMIDOS EFG, 30 COMPRIMIDOS [Concomitant]
     Dosage: 80MG
     Route: 048
     Dates: start: 20150901
  9. CLEXANE 6.000 UI (60 MG)/ 0,6 ML SOLUCION INYECTABLE EN JERINGA PRECAR [Suspect]
     Active Substance: ENOXAPARIN SODIUM
     Dosage: 60MG
     Route: 058
     Dates: start: 2020, end: 20200714
  10. CRESTOR 10 MG COMPRIMIDOS RECUBIERTOS CON PELICULA , 28 COMPRIMIDOS [Concomitant]
     Dosage: 10MG
     Route: 048
     Dates: start: 20121004
  11. ZOLPIDEM TEVAGEN 10 MG COMPRIMIDOS RECUBIERTOS CON PELICULA EFG , 30 C [Concomitant]
     Dosage: 10MG
     Route: 048
     Dates: start: 20200610
  12. PIPERACILINA + TAZOBACTAM [Concomitant]
     Active Substance: PIPERACILLIN SODIUM\TAZOBACTAM SODIUM
     Dosage: 1 DOSAGE FORMS
     Route: 048
  13. PLUSVENT ACCUHALER 50 MICROGRAMOS/250 MICROGRAMOS /INHALACION POLVO PA [Concomitant]
     Dosage: 1 DOSAGE FORMS
     Route: 055
     Dates: start: 20141117
  14. BISOPROLOL COR SANDOZ 2.5 MG COMPRIMIDOS RECUBIERTOS CON PELICULA EFG, [Concomitant]
     Dosage: 2.5MG
     Route: 048
     Dates: start: 20200709
  15. GABAPENTINA TEVA 100 MG CAPSULAS DURAS EFG , 90 CAPSULAS [Concomitant]
     Dosage: 100MG
     Route: 048
     Dates: start: 20200604
  16. ROCALTROL 0,25 MCG CAPSULAS BLANDAS , 20 CAPSULAS [Concomitant]
     Dosage: 0.25MCG
     Route: 048
     Dates: start: 20160505
  17. NOVORAPID FLEXPEN 100 U/ML, SOLUCION INYECTABLE EN UNA PLUMA PRECARGAD [Concomitant]
     Dosage: 4IU
     Route: 058
     Dates: start: 20200303
  18. SOLINITRINA 0,8 MG COMPRIMIDOS RECUBIERTOS SUBLINGUALES , 30 COMPRIMID [Concomitant]
     Dosage: 0.8MG
     Route: 060
     Dates: start: 20171005

REACTIONS (3)
  - Rectal haemorrhage [Recovered/Resolved]
  - Thrombocytopenia [Recovered/Resolved]
  - Anaemia [Not Recovered/Not Resolved]

NARRATIVE: CASE EVENT DATE: 20200714
